FAERS Safety Report 10211479 (Version 2)
Quarter: 2014Q4

REPORT INFORMATION
  Report Type: Report from Study
  Country: US (occurrence: US)
  Receive Date: 20140602
  Receipt Date: 20141216
  Transmission Date: 20150528
  Serious: Yes (Death, Hospitalization, Other)
  Sender: FDA-Public Use
  Company Number: US-SA-2014SA067523

PATIENT
  Age: 58 Year
  Sex: Female

DRUGS (1)
  1. AUBAGIO [Suspect]
     Active Substance: TERIFLUNOMIDE
     Indication: MULTIPLE SCLEROSIS
     Route: 048
     Dates: start: 201403, end: 20140610

REACTIONS (6)
  - Multiple sclerosis relapse [Fatal]
  - Chronic obstructive pulmonary disease [Fatal]
  - Abasia [Unknown]
  - Weight decreased [Unknown]
  - Electrolyte imbalance [Unknown]
  - Decreased appetite [Unknown]
